FAERS Safety Report 17346993 (Version 1)
Quarter: 2020Q1

REPORT INFORMATION
  Report Type: Spontaneous
  Country: PH (occurrence: PH)
  Receive Date: 20200130
  Receipt Date: 20200130
  Transmission Date: 20200409
  Serious: Yes (Hospitalization)
  Sender: FDA-Public Use
  Company Number: PH-HETERO-HET2020PH00103

PATIENT
  Age: 24 Year
  Sex: Male

DRUGS (1)
  1. TENOFOVIR DISOPROXILO [Suspect]
     Active Substance: TENOFOVIR DISOPROXIL
     Indication: ANTIRETROVIRAL THERAPY
     Dosage: UNK
     Route: 065

REACTIONS (1)
  - Hypersensitivity [Unknown]
